FAERS Safety Report 6151820-7 (Version None)
Quarter: 2009Q2

REPORT INFORMATION
  Report Type: 
  Country: None (occurrence: None)
  Receive Date: 20090410
  Receipt Date: 20090331
  Transmission Date: 20091009
  Serious: Yes (Other)
  Sender: FDA-Public Use
  Company Number: GB-PFIZER INC-2009176974

PATIENT

DRUGS (4)
  1. GABAPENTIN [Suspect]
     Indication: TRIGEMINAL NEURALGIA
     Dosage: 300 MG, 3X/DAY
     Route: 048
     Dates: start: 20050628
  2. LYRICA [Suspect]
     Indication: TRIGEMINAL NEURALGIA
     Dosage: 75 MG, 2X/DAY
     Route: 048
     Dates: start: 20060911
  3. PERINDOPRIL [Concomitant]
     Indication: HYPOTENSION
     Dosage: 4 MG, 1X/DAY
     Route: 048
     Dates: start: 20050322
  4. AMLODIPINE BESILATE [Concomitant]
     Dosage: 5 MG, 1X/DAY
     Route: 048
     Dates: start: 20050329

REACTIONS (3)
  - MUSCLE TWITCHING [None]
  - TRIGEMINAL NEURALGIA [None]
  - TRISMUS [None]
